FAERS Safety Report 24946597 (Version 2)
Quarter: 2025Q1

REPORT INFORMATION
  Report Type: Report from Study
  Country: FR (occurrence: FR)
  Receive Date: 20250210
  Receipt Date: 20250217
  Transmission Date: 20250409
  Serious: No
  Sender: SANDOZ
  Company Number: FR-SANDOZ-SDZ2025FR007868

PATIENT
  Age: 6 Year
  Sex: Female

DRUGS (1)
  1. SOMATROPIN [Suspect]
     Active Substance: SOMATROPIN
     Indication: Product used for unknown indication
     Route: 058
     Dates: start: 20250125

REACTIONS (1)
  - Injection site pain [Unknown]
